FAERS Safety Report 5280518-2 (Version None)
Quarter: 2007Q1

REPORT INFORMATION
  Report Type: 
  Country: None (occurrence: None)
  Receive Date: 20070329
  Receipt Date: 20070319
  Transmission Date: 20070707
  Serious: Yes (Other)
  Sender: FDA-Public Use
  Company Number: US-JNJFOC-20050300359

PATIENT
  Sex: Male
  Weight: 95.26 kg

DRUGS (1)
  1. DURAGESIC-100 [Suspect]
     Indication: PAIN
     Route: 062
     Dates: start: 20040201

REACTIONS (6)
  - ANKLE FRACTURE [None]
  - ARTHROPATHY [None]
  - BACK DISORDER [None]
  - FALL [None]
  - FOOT FRACTURE [None]
  - THERAPEUTIC RESPONSE DECREASED [None]
